FAERS Safety Report 18022425 (Version 2)
Quarter: 2020Q3

REPORT INFORMATION
  Report Type: Spontaneous
  Country: BE (occurrence: BE)
  Receive Date: 20200714
  Receipt Date: 20200909
  Transmission Date: 20201103
  Serious: Yes (Hospitalization, Other)
  Sender: FDA-Public Use
  Company Number: BE-MYLANLABS-2020M1062460

PATIENT
  Age: 63 Year
  Sex: Male

DRUGS (17)
  1. CETUXIMAB. [Suspect]
     Active Substance: CETUXIMAB
     Indication: COLORECTAL CANCER METASTATIC
     Dosage: 717 MILLIGRAM
     Route: 042
     Dates: start: 20200122
  2. AVELUMAB [Suspect]
     Active Substance: AVELUMAB
     Dosage: 720 MILLIGRAM
     Route: 042
     Dates: start: 20200526, end: 20200526
  3. AMOXICLAV [Concomitant]
     Active Substance: AMOXICILLIN\CLAVULANATE POTASSIUM
     Indication: SEPSIS
     Dosage: 1 GRAM
     Route: 042
     Dates: start: 20200608
  4. AMLOR [Concomitant]
     Active Substance: AMLODIPINE BESYLATE
     Indication: PRODUCT USED FOR UNKNOWN INDICATION
     Dosage: UNK
     Route: 065
     Dates: start: 201807
  5. LOSFERRON [Concomitant]
     Indication: IRON DEFICIENCY ANAEMIA
     Dosage: 695 MILLIGRAM, QD
     Route: 048
  6. TOUJEO [Concomitant]
     Active Substance: INSULIN GLARGINE
     Indication: PRODUCT USED FOR UNKNOWN INDICATION
     Dosage: UNK
     Route: 065
     Dates: start: 201811
  7. AVELUMAB [Suspect]
     Active Substance: AVELUMAB
     Indication: COLORECTAL CANCER METASTATIC
     Dosage: 10MG/KG
     Route: 042
     Dates: start: 20200204
  8. IRINOTECAN [Suspect]
     Active Substance: IRINOTECAN
     Dosage: 266 MILLIGRAM
     Route: 042
     Dates: start: 20200526, end: 20200526
  9. IRINOTECAN [Suspect]
     Active Substance: IRINOTECAN
     Dosage: UNK
     Route: 042
     Dates: start: 20200616
  10. PANTOPRAZOLE [Suspect]
     Active Substance: PANTOPRAZOLE
     Indication: PRODUCT USED FOR UNKNOWN INDICATION
     Dosage: UNK
     Dates: start: 201904
  11. CETUXIMAB. [Suspect]
     Active Substance: CETUXIMAB
     Dosage: 888 MILLIGRAM
     Route: 042
     Dates: start: 20200526, end: 20200526
  12. NOVORAPID [Concomitant]
     Active Substance: INSULIN ASPART
     Indication: PRODUCT USED FOR UNKNOWN INDICATION
     Dosage: UNK
     Route: 065
     Dates: start: 20180929
  13. SIMVASTATINE [Concomitant]
     Active Substance: SIMVASTATIN
     Indication: PRODUCT USED FOR UNKNOWN INDICATION
     Dosage: UNK
     Route: 065
  14. INNOHEP [Concomitant]
     Active Substance: TINZAPARIN SODIUM
     Indication: PRODUCT USED FOR UNKNOWN INDICATION
     Dosage: UNK
     Route: 065
     Dates: start: 20190930
  15. IRINOTECAN [Suspect]
     Active Substance: IRINOTECAN
     Indication: COLORECTAL CANCER METASTATIC
     Dosage: 269 MILLIGRAM
     Route: 042
     Dates: start: 20200122
  16. CETUXIMAB. [Suspect]
     Active Substance: CETUXIMAB
     Dosage: UNK
     Route: 042
     Dates: start: 20200616
  17. AVELUMAB [Suspect]
     Active Substance: AVELUMAB
     Dosage: 729 MILLIGRAM 10 MG/KG
     Route: 042
     Dates: start: 20200616

REACTIONS (1)
  - Sepsis [Recovered/Resolved]

NARRATIVE: CASE EVENT DATE: 20200607
